FAERS Safety Report 9476451 (Version 3)
Quarter: 2013Q4

REPORT INFORMATION
  Report Type: Spontaneous
  Country: IT (occurrence: IT)
  Receive Date: 20130826
  Receipt Date: 20131118
  Transmission Date: 20140711
  Serious: Yes (Other)
  Sender: FDA-Public Use
  Company Number: IT-JNJFOC-20130811067

PATIENT
  Age: 14 Year
  Sex: Male
  Weight: 63 kg

DRUGS (4)
  1. RISPERDAL [Suspect]
     Indication: PSYCHOTIC DISORDER
     Route: 048
  2. RISPERDAL [Suspect]
     Indication: PSYCHOTIC DISORDER
     Route: 048
  3. RISPERDAL [Suspect]
     Indication: PSYCHOTIC DISORDER
     Route: 048
     Dates: start: 20070101, end: 20130807
  4. DISIPAL [Interacting]
     Indication: PSYCHOTIC DISORDER
     Route: 048
     Dates: start: 20080101, end: 20130807

REACTIONS (2)
  - Blood prolactin increased [Not Recovered/Not Resolved]
  - Drug interaction [Not Recovered/Not Resolved]
